FAERS Safety Report 9495220 (Version 1)
Quarter: 2013Q3

REPORT INFORMATION
  Report Type: Spontaneous
  Country: None (occurrence: None)
  Receive Date: 20130828
  Receipt Date: 20130828
  Transmission Date: 20140515
  Serious: Yes (Hospitalization, Other)
  Sender: FDA-Public Use
  Company Number: GER/UKI/13/0034283

PATIENT
  Age: 47 Year
  Sex: Female

DRUGS (8)
  1. QUETIAPINE [Suspect]
     Indication: PRODUCT USED FOR UNKNOWN INDICATION
     Dosage: 500MG, 1 IN 1 D, ORAL
     Route: 048
  2. ASPIRIN (ACETYLSASICYLIC ACID) [Concomitant]
  3. BISOPROLOL (BISOPROLOL) [Concomitant]
  4. LORATIDINE [Concomitant]
  5. MIRTAZAPINE (MIRTAZAPINE) [Concomitant]
  6. OMEPRAZOLE (OMEPRAZOLE) [Concomitant]
  7. RAMIPRIL (RAMIPRIL) [Concomitant]
  8. SERTRALINE (SERTRALINE) [Concomitant]

REACTIONS (1)
  - Pericarditis [None]
